FAERS Safety Report 23240334 (Version 1)
Quarter: 2023Q4

REPORT INFORMATION
  Report Type: Spontaneous
  Country: FR (occurrence: FR)
  Receive Date: 20231129
  Receipt Date: 20231129
  Transmission Date: 20240110
  Serious: Yes (Hospitalization)
  Sender: FDA-Public Use
  Company Number: FR-ROCHE-3433837

PATIENT
  Age: 79 Year
  Sex: Male
  Weight: 65 kg

DRUGS (12)
  1. BEVACIZUMAB [Suspect]
     Active Substance: BEVACIZUMAB
     Indication: Colorectal cancer metastatic
     Dosage: 520 MILLIGRAM
     Route: 065
     Dates: start: 20230926
  2. BEVACIZUMAB [Suspect]
     Active Substance: BEVACIZUMAB
     Dosage: ON 26/SEP/2023, HE ADMINISTERED LAST DOSE (520 MG) BEFORE SAE CYCLE 23
     Route: 065
     Dates: start: 20220802
  3. OXALIPLATIN [Suspect]
     Active Substance: OXALIPLATIN
     Indication: Colorectal cancer metastatic
     Dosage: ON 26/SEP/2023, HE ADMINISTERED LAST DOSE (174 MG) BEFORE SAE CYCLE 23
     Route: 065
     Dates: start: 20220621
  4. OXALIPLATIN [Suspect]
     Active Substance: OXALIPLATIN
     Dosage: 174 MILLIGRAM
     Route: 065
     Dates: start: 20230926
  5. CAPECITABINE [Suspect]
     Active Substance: CAPECITABINE
     Indication: Colorectal cancer metastatic
     Dosage: 3300 MILLIGRAM
     Route: 065
     Dates: start: 20230913
  6. CAPECITABINE [Suspect]
     Active Substance: CAPECITABINE
     Dosage: ON 13/SEP/2023, HE ADMINISTERED LAST DOSE BEFORE SAE (3300 MG)
     Route: 048
     Dates: start: 20220621
  7. ATEZOLIZUMAB [Suspect]
     Active Substance: ATEZOLIZUMAB
     Indication: Colorectal cancer metastatic
     Dosage: ON 26/SEP/2023, HE ADMINISTERED LAST DOSE (1200 MG) BEFORE SAE CYCLE 23
     Route: 065
     Dates: start: 20220621
  8. CARAFATE [Concomitant]
     Active Substance: SUCRALFATE
     Dosage: UNK
  9. CETALKONIUM CHLORIDE\CHOLINE SALICYLATE [Concomitant]
     Active Substance: CETALKONIUM CHLORIDE\CHOLINE SALICYLATE
     Dosage: UNK
  10. GAVISCON [Concomitant]
     Active Substance: ALUMINUM HYDROXIDE\MAGNESIUM CARBONATE
     Dosage: UNK
  11. LIPTRUZET [Concomitant]
     Active Substance: ATORVASTATIN CALCIUM\EZETIMIBE
     Dosage: 40 MILLIGRAM
  12. ENALAPRIL MALEATE\LERCANIDIPINE HYDROCHLORIDE [Concomitant]
     Active Substance: ENALAPRIL MALEATE\LERCANIDIPINE HYDROCHLORIDE
     Dosage: 20 MILLIGRAM

REACTIONS (1)
  - Retinal detachment [Not Recovered/Not Resolved]

NARRATIVE: CASE EVENT DATE: 20231012
